FAERS Safety Report 18013722 (Version 1)
Quarter: 2020Q3

REPORT INFORMATION
  Report Type: Spontaneous
  Country: US (occurrence: US)
  Receive Date: 20200711
  Receipt Date: 20200711
  Transmission Date: 20201103
  Serious: No
  Sender: FDA-Public Use
  Company Number: None

PATIENT
  Age: 44 Year
  Sex: Female
  Weight: 74.7 kg

DRUGS (1)
  1. XHANCE [Suspect]
     Active Substance: FLUTICASONE PROPIONATE
     Indication: SINUS DISORDER
     Dosage: ?          OTHER STRENGTH:93 MCG;?
     Route: 055

REACTIONS (3)
  - Skin laceration [None]
  - Injury associated with device [None]
  - Device breakage [None]

NARRATIVE: CASE EVENT DATE: 20200709
